FAERS Safety Report 11246249 (Version 1)
Quarter: 2015Q3

REPORT INFORMATION
  Report Type: Spontaneous
  Country: US (occurrence: None)
  Receive Date: 20150706
  Receipt Date: 20150706
  Transmission Date: 20151125
  Serious: Yes (Hospitalization, Congenital Anomaly, Other)
  Sender: FDA-Public Use
  Company Number: None

PATIENT
  Age: 2 Month
  Sex: Male
  Weight: 3.63 kg

DRUGS (2)
  1. ONDANSETON 4 MG [Suspect]
     Active Substance: ONDANSETRON
     Indication: VOMITING IN PREGNANCY
     Dosage: 1, FOUR TIMES DAILY, TAKEN BY MOUTH
     Route: 048
     Dates: start: 20131024, end: 20131206
  2. OMEPRA [Concomitant]

REACTIONS (5)
  - Choking [None]
  - Maternal drugs affecting foetus [None]
  - Cough [None]
  - Aspiration [None]
  - Laryngeal cleft [None]

NARRATIVE: CASE EVENT DATE: 20140607
